FAERS Safety Report 23972237 (Version 1)
Quarter: 2024Q2

REPORT INFORMATION
  Report Type: Spontaneous
  Country: US (occurrence: None)
  Receive Date: 20240613
  Receipt Date: 20240613
  Transmission Date: 20240716
  Serious: Yes (Hospitalization)
  Sender: FDA-Public Use
  Company Number: None

PATIENT
  Age: 40 Year
  Sex: Male
  Weight: 156.9 kg

DRUGS (1)
  1. CYTARABINE\DAUNORUBICIN [Suspect]
     Active Substance: CYTARABINE\DAUNORUBICIN
     Dates: end: 20240611

REACTIONS (4)
  - White blood cell count decreased [None]
  - Platelet count decreased [None]
  - Anaemia [None]
  - Neutrophil count decreased [None]

NARRATIVE: CASE EVENT DATE: 20240607
